FAERS Safety Report 4592658-1 (Version None)
Quarter: 2005Q1

REPORT INFORMATION
  Report Type: 
  Country: None (occurrence: None)
  Receive Date: 20050218
  Receipt Date: 20050204
  Transmission Date: 20050727
  Serious: Yes (Hospitalization)
  Sender: FDA-Public Use
  Company Number: 2004AC00051

PATIENT
  Age: 1 Month
  Sex: Male
  Weight: 4.5 kg

DRUGS (1)
  1. LIDOCAINE [Suspect]
     Indication: ANAESTHESIA
     Dosage: 3 ML PNEU

REACTIONS (5)
  - COMA [None]
  - CONVULSION [None]
  - DRUG TOXICITY [None]
  - HYPERTONIA [None]
  - OVERDOSE [None]
